FAERS Safety Report 12554236 (Version 3)
Quarter: 2016Q3

REPORT INFORMATION
  Report Type: Spontaneous
  Country: US (occurrence: US)
  Receive Date: 20160713
  Receipt Date: 20160802
  Transmission Date: 20161109
  Serious: No
  Sender: FDA-Public Use
  Company Number: US-PFIZER INC-2016318688

PATIENT
  Age: 61 Year
  Sex: Female
  Weight: 79.37 kg

DRUGS (3)
  1. IRON [Suspect]
     Active Substance: IRON
     Dosage: UNK (TAKE 1 EVERY 3 DAYS.)
  2. MORPHINE SULFATE. [Suspect]
     Active Substance: MORPHINE SULFATE
     Indication: BREAKTHROUGH PAIN
     Dosage: 30 MG, 4X/DAY  (ONE TABLET,EVERY 6 HOURS)
     Route: 048
     Dates: start: 2015
  3. MORPHINE [Suspect]
     Active Substance: MORPHINE
     Indication: PAIN
     Dosage: 60 MG, 2X/DAY(ONCE IN AM AND ONCE IN PM )
     Route: 048
     Dates: start: 2015

REACTIONS (3)
  - Drug effect incomplete [Not Recovered/Not Resolved]
  - Constipation [Unknown]
  - Condition aggravated [Unknown]
